FAERS Safety Report 19255746 (Version 1)
Quarter: 2021Q2

REPORT INFORMATION
  Report Type: Spontaneous
  Country: PL (occurrence: PL)
  Receive Date: 20210514
  Receipt Date: 20210514
  Transmission Date: 20210717
  Serious: Yes (Death, Hospitalization)
  Sender: FDA-Public Use
  Company Number: PL-ABBVIE-21K-129-3904708-00

PATIENT
  Age: 69 Year
  Sex: Male

DRUGS (2)
  1. VENCLYXTO [Suspect]
     Active Substance: VENETOCLAX
     Route: 048
     Dates: start: 2021
  2. VENCLYXTO [Suspect]
     Active Substance: VENETOCLAX
     Indication: CHRONIC LYMPHOCYTIC LEUKAEMIA
     Route: 048
     Dates: start: 20210311, end: 2021

REACTIONS (11)
  - Sepsis [Fatal]
  - Asthenia [Unknown]
  - Multiple organ dysfunction syndrome [Unknown]
  - Pneumonia [Unknown]
  - Dyspnoea at rest [Unknown]
  - Condition aggravated [Unknown]
  - Chronic lymphocytic leukaemia [Fatal]
  - Septic shock [Unknown]
  - Pyrexia [Unknown]
  - Hyperhidrosis [Unknown]
  - Acute kidney injury [Unknown]

NARRATIVE: CASE EVENT DATE: 202104
